FAERS Safety Report 4686735-4 (Version None)
Quarter: 2005Q2

REPORT INFORMATION
  Report Type: 
  Country: None (occurrence: None)
  Receive Date: 20050608
  Receipt Date: 20050526
  Transmission Date: 20051028
  Serious: Yes (Life-Threatening)
  Sender: FDA-Public Use
  Company Number: 2005078216

PATIENT
  Age: 85 Year
  Sex: Male
  Weight: 65.5 kg

DRUGS (6)
  1. CABERGOLINE [Suspect]
     Indication: PARKINSON'S DISEASE
     Dosage: SEE IMAGE
     Route: 048
     Dates: start: 20041020, end: 20050309
  2. CABERGOLINE [Suspect]
     Indication: PARKINSON'S DISEASE
     Dosage: SEE IMAGE
     Route: 048
     Dates: start: 20040317
  3. CABERGOLINE [Suspect]
     Indication: PARKINSON'S DISEASE
     Dosage: SEE IMAGE
     Route: 048
     Dates: start: 20040421
  4. NAUZELIN (DOMPERIDONE) [Concomitant]
  5. EC DOPARL (BENSERAZIDE HYDROCHLORIDE, LEVODOPA) [Concomitant]
  6. MUCOSTA (REBAMIPIDE) [Concomitant]

REACTIONS (1)
  - INTERSTITIAL LUNG DISEASE [None]
